FAERS Safety Report 18275703 (Version 1)
Quarter: 2020Q3

REPORT INFORMATION
  Report Type: Spontaneous
  Country: IT (occurrence: IT)
  Receive Date: 20200917
  Receipt Date: 20200917
  Transmission Date: 20201103
  Serious: Yes (Other)
  Sender: FDA-Public Use
  Company Number: IT-INGENUS PHARMACEUTICALS, LLC-2020INF000160

PATIENT
  Age: 71 Year
  Sex: Male

DRUGS (5)
  1. FLUOROURACIL. [Suspect]
     Active Substance: FLUOROURACIL
     Indication: COLORECTAL CANCER METASTATIC
     Dosage: 750 MILLIGRAM/SQ. METER, QD ON DAYS 1?4, 15?18, CYCLES REPEATED
     Route: 065
  2. FLUOROURACIL. [Suspect]
     Active Substance: FLUOROURACIL
     Dosage: 1500 MILLIGRAM/SQ. METER, 1 TIMES A WEEK
     Route: 065
  3. AFLIBERCEPT [Suspect]
     Active Substance: AFLIBERCEPT
     Indication: COLORECTAL CANCER METASTATIC
     Dosage: 4 MILLIGRAM/KILOGRAM ON DAY 1 AND 15, CYCLES REPEATED 28 DAYS
     Route: 065
  4. AFLIBERCEPT [Suspect]
     Active Substance: AFLIBERCEPT
     Dosage: 2 MILLIGRAM/KILOGRAM, ON DAY 1 AND 15, EVERY 28 DAYS
     Route: 065
  5. IRINOTECAN HYDROCHLORIDE. [Suspect]
     Active Substance: IRINOTECAN HYDROCHLORIDE
     Indication: COLORECTAL CANCER METASTATIC
     Dosage: 120 MILLIGRAM/SQ. METER ON DAY 1 AND 15, CYCLES REPEATED EVERY 28 DAYS
     Route: 065

REACTIONS (10)
  - Asthenia [Unknown]
  - Mucosal inflammation [Unknown]
  - Hypertension [Unknown]
  - Palmar-plantar erythrodysaesthesia syndrome [Unknown]
  - Alopecia [Unknown]
  - Dysphonia [Unknown]
  - Blood bilirubin increased [Unknown]
  - Epistaxis [Unknown]
  - Rhinitis [Unknown]
  - Diarrhoea [Unknown]
